FAERS Safety Report 9003531 (Version 1)
Quarter: 2013Q1

REPORT INFORMATION
  Report Type: Spontaneous
  Country: US (occurrence: US)
  Receive Date: 20130108
  Receipt Date: 20130108
  Transmission Date: 20140127
  Serious: Yes (Other)
  Sender: FDA-Public Use
  Company Number: US-CELGENEUS-163-21880-12123230

PATIENT
  Sex: Male
  Weight: 61.7 kg

DRUGS (1)
  1. REVLIMID [Suspect]
     Indication: PLASMA CELL MYELOMA
     Dosage: 25 MILLIGRAM
     Route: 048
     Dates: start: 20121004

REACTIONS (4)
  - Eye haemorrhage [Unknown]
  - Neuropathy peripheral [Not Recovered/Not Resolved]
  - Constipation [Unknown]
  - Sneezing [Unknown]
